FAERS Safety Report 5654878-4 (Version None)
Quarter: 2008Q1

REPORT INFORMATION
  Report Type: 
  Country: None (occurrence: None)
  Receive Date: 20080307
  Receipt Date: 20070820
  Transmission Date: 20080703
  Serious: No
  Sender: FDA-Public Use
  Company Number: A0673053A

PATIENT
  Age: 58 Year
  Sex: Female

DRUGS (7)
  1. REQUIP [Suspect]
     Indication: RESTLESS LEGS SYNDROME
     Dosage: 3MG THREE TIMES PER DAY
     Route: 048
     Dates: start: 20040101
  2. EFFEXOR [Concomitant]
  3. PREMARIN [Concomitant]
  4. LORADIN [Concomitant]
  5. ULTRAM [Concomitant]
  6. PRILOSEC [Concomitant]
  7. SYNTHROID [Concomitant]

REACTIONS (1)
  - MOUTH ULCERATION [None]
